FAERS Safety Report 7807526-9 (Version None)
Quarter: 2011Q4

REPORT INFORMATION
  Report Type: 
  Country: None (occurrence: None)
  Receive Date: 20111011
  Receipt Date: 20111003
  Transmission Date: 20120403
  Serious: Yes (Other)
  Sender: FDA-Public Use
  Company Number: US-GLAXOSMITHKLINE-A0934786A

PATIENT
  Age: 62 Year
  Sex: Female
  Weight: 56.4 kg

DRUGS (2)
  1. LAMICTAL [Suspect]
     Indication: AFFECTIVE DISORDER
     Dosage: 50MG TWICE PER DAY
     Route: 048
     Dates: start: 20110201
  2. SEROQUEL [Concomitant]

REACTIONS (2)
  - CATARACT [None]
  - WRONG TECHNIQUE IN DRUG USAGE PROCESS [None]
